FAERS Safety Report 6682035-1 (Version None)
Quarter: 2010Q2

REPORT INFORMATION
  Report Type: 
  Country: None (occurrence: None)
  Receive Date: 20100414
  Receipt Date: 20100414
  Transmission Date: 20101027
  Serious: Yes (Other)
  Sender: FDA-Public Use
  Company Number: None

PATIENT
  Age: 67 Year
  Sex: Male
  Weight: 83.0083 kg

DRUGS (2)
  1. CIALIS [Suspect]
     Indication: ERECTILE DYSFUNCTION
     Dosage: 1 AS NEEDED PO
     Route: 048
     Dates: start: 20100330, end: 20100401
  2. SIMVASTATIN [Suspect]
     Indication: BLOOD CHOLESTEROL ABNORMAL
     Dosage: 1 EACH DAY PO AT LEAST 10 YEARS
     Route: 048

REACTIONS (2)
  - BACK PAIN [None]
  - DRUG INTERACTION [None]
